FAERS Safety Report 5241384-4 (Version None)
Quarter: 2007Q1

REPORT INFORMATION
  Report Type: 
  Country: None (occurrence: None)
  Receive Date: 20070215
  Receipt Date: 20070215
  Transmission Date: 20070707
  Serious: Yes (Other)
  Sender: FDA-Public Use
  Company Number: None

PATIENT
  Sex: Female

DRUGS (1)
  1. SINEMET CR [Suspect]
     Indication: RESTLESS LEGS SYNDROME
     Dosage: 25-100 BID PO
     Route: 048
     Dates: start: 20061221

REACTIONS (3)
  - DIZZINESS [None]
  - FEELING ABNORMAL [None]
  - VISUAL DISTURBANCE [None]
